FAERS Safety Report 4406407-0 (Version None)
Quarter: 2004Q3

REPORT INFORMATION
  Report Type: 
  Country: None (occurrence: None)
  Receive Date: 20040723
  Receipt Date: 20030721
  Transmission Date: 20050211
  Serious: No
  Sender: FDA-Public Use
  Company Number: US-GLAXOSMITHKLINE-A0417633A

PATIENT
  Age: 72 Year
  Sex: Female

DRUGS (14)
  1. AVANDIA [Suspect]
     Dosage: 4MG PER DAY
     Route: 048
     Dates: start: 20030708
  2. TRICOR [Concomitant]
  3. SPIRONOLACTONE [Concomitant]
  4. LASIX [Concomitant]
     Dosage: 60MG PER DAY
  5. DILTIA [Concomitant]
     Dosage: 140MG PER DAY
  6. COUMADIN [Concomitant]
     Dosage: 5MG PER DAY
  7. ACIPHEX [Concomitant]
     Dosage: 40MG PER DAY
  8. NEURONTIN [Concomitant]
     Dosage: 2700MG PER DAY
  9. MAGNESIUM [Concomitant]
  10. COZAAR [Concomitant]
  11. NITROFURANTOIN [Concomitant]
     Dosage: 50MG PER DAY
  12. METAGLIP [Concomitant]
     Route: 048
  13. LANTUS [Concomitant]
     Dosage: 30UD PER DAY
  14. HUMALOG [Concomitant]
     Dosage: 24UD PER DAY

REACTIONS (2)
  - ARTHRALGIA [None]
  - JOINT SWELLING [None]
